FAERS Safety Report 9798429 (Version 1)
Quarter: 2014Q1

REPORT INFORMATION
  Report Type: Report from Study
  Country: US (occurrence: US)
  Receive Date: 20140106
  Receipt Date: 20140106
  Transmission Date: 20141002
  Serious: Yes (Other)
  Sender: FDA-Public Use
  Company Number: US-TEVA-454131USA

PATIENT
  Sex: Male

DRUGS (1)
  1. CLARAVIS [Suspect]

REACTIONS (2)
  - Suicidal ideation [Unknown]
  - Depression [Unknown]
